FAERS Safety Report 24831148 (Version 1)
Quarter: 2025Q1

REPORT INFORMATION
  Report Type: Spontaneous
  Country: GB (occurrence: GB)
  Receive Date: 20250110
  Receipt Date: 20250110
  Transmission Date: 20250409
  Serious: Yes (Hospitalization, Other)
  Sender: VERTEX
  Company Number: GB-VERTEX PHARMACEUTICALS-2025-000346

PATIENT
  Sex: Male

DRUGS (2)
  1. ELEXACAFTOR\IVACAFTOR\TEZACAFTOR [Suspect]
     Active Substance: ELEXACAFTOR\IVACAFTOR\TEZACAFTOR
     Indication: Cystic fibrosis
     Dosage: 37.5 MG IVACAFTOR/25 MG TEZACAFTOR/50 MG ELEXACAFTOR 2 IN AM
     Route: 048
  2. KALYDECO [Suspect]
     Active Substance: IVACAFTOR
     Indication: Cystic fibrosis
     Dosage: 75 MG IVACAFTOR, IN PM
     Route: 048

REACTIONS (3)
  - Hernia [Unknown]
  - Hospitalisation [Unknown]
  - Fear [Unknown]
